FAERS Safety Report 15018149 (Version 1)
Quarter: 2018Q2

REPORT INFORMATION
  Report Type: Spontaneous
  Country: US (occurrence: US)
  Receive Date: 20180523
  Receipt Date: 20180523
  Transmission Date: 20180711
  Serious: Yes (Hospitalization, Other)
  Sender: FDA-Public Use
  Company Number: None

PATIENT
  Age: 59 Year
  Sex: Female

DRUGS (8)
  1. HUMIRA [Suspect]
     Active Substance: ADALIMUMAB
     Indication: PSORIATIC ARTHROPATHY
     Route: 048
     Dates: start: 20160325
  2. ATENOLOL. [Concomitant]
     Active Substance: ATENOLOL
  3. SYNTHROID [Concomitant]
     Active Substance: LEVOTHYROXINE SODIUM
  4. TRAMADOL. [Concomitant]
     Active Substance: TRAMADOL
  5. LIPITOR [Concomitant]
     Active Substance: ATORVASTATIN CALCIUM
  6. EZETIMIBE. [Concomitant]
     Active Substance: EZETIMIBE
  7. PLAVIX [Concomitant]
     Active Substance: CLOPIDOGREL BISULFATE
  8. ZETIA [Concomitant]
     Active Substance: EZETIMIBE

REACTIONS (2)
  - Drug dose omission [None]
  - Surgery [None]
